FAERS Safety Report 14022475 (Version 11)
Quarter: 2022Q1

REPORT INFORMATION
  Report Type: Spontaneous
  Country: IT (occurrence: IT)
  Receive Date: 20170929
  Receipt Date: 20220214
  Transmission Date: 20220423
  Serious: Yes (Hospitalization, Other)
  Sender: FDA-Public Use
  Company Number: IT-AUROBINDO-AUR-APL-2017-41034

PATIENT
  Age: 16 Year
  Sex: Female

DRUGS (11)
  1. ZOLPIDEM [Suspect]
     Active Substance: ZOLPIDEM TARTRATE
     Indication: Product used for unknown indication
     Dosage: 2.5 MILLIGRAM, ONCE A DAY
     Route: 065
     Dates: start: 20170905, end: 20170905
  2. LORAZEPAM [Interacting]
     Active Substance: LORAZEPAM
     Indication: Intentional self-injury
     Dosage: 75 MG, TOTAL (75 MG, ONCE/SINGLE)
     Route: 048
     Dates: start: 20170905, end: 20170905
  3. LORMETAZEPAM [Interacting]
     Active Substance: LORMETAZEPAM
     Indication: Intentional self-injury
     Dosage: 10 MG, ONCE/SINGLE (TOTAL) ; IN TOTAL
     Route: 048
     Dates: start: 20170905, end: 20170905
  4. VENLAFAXINE [Interacting]
     Active Substance: VENLAFAXINE HYDROCHLORIDE
     Indication: Intentional self-injury
     Dosage: 150 MG, ONCE/SINGLE (TOTAL) ; IN TOTAL
     Route: 048
     Dates: start: 20170905, end: 20170905
  5. ALCOHOL [Interacting]
     Active Substance: ALCOHOL
     Indication: Product used for unknown indication
     Dosage: 1 DOSAGE FORM  1 TOTAL
     Route: 048
     Dates: start: 20170905, end: 20170905
  6. TRIAZOLAM [Interacting]
     Active Substance: TRIAZOLAM
     Indication: Intentional self-injury
     Dosage: 2.5 MG, ONCE/SINGLE (TOTAL) ; IN TOTAL
     Route: 048
     Dates: start: 20170905, end: 20170905
  7. RISPERDAL [Interacting]
     Active Substance: RISPERIDONE
     Indication: Attention deficit hyperactivity disorder
     Dosage: 75 MILLILITER 1 TOTAL, 75 ML, ONCE/SINGLE (TOTAL) ; IN TOTAL
     Route: 048
     Dates: start: 20170905, end: 20170905
  8. RISPERDAL [Interacting]
     Active Substance: RISPERIDONE
     Indication: Intentional self-injury
  9. RISPERDAL [Interacting]
     Active Substance: RISPERIDONE
     Indication: Intellectual disability
  10. VALPROATE SODIUM [Concomitant]
     Active Substance: VALPROATE SODIUM
     Indication: Intellectual disability
     Dosage: UNK
     Route: 048
  11. VALPROATE SODIUM [Concomitant]
     Active Substance: VALPROATE SODIUM
     Indication: Attention deficit hyperactivity disorder

REACTIONS (13)
  - Contraindicated product administered [Unknown]
  - Intellectual disability [Unknown]
  - Loss of consciousness [Unknown]
  - Attention deficit hyperactivity disorder [Unknown]
  - Sopor [Unknown]
  - Aphasia [Unknown]
  - Concomitant disease aggravated [Unknown]
  - Drug interaction [Unknown]
  - Drug abuse [Unknown]
  - Overdose [Unknown]
  - Alcohol interaction [Unknown]
  - Intentional product misuse [Unknown]
  - Intentional self-injury [Unknown]

NARRATIVE: CASE EVENT DATE: 20170905
